FAERS Safety Report 7769884-3 (Version None)
Quarter: 2011Q3

REPORT INFORMATION
  Report Type: 
  Country: None (occurrence: None)
  Receive Date: 20110922
  Receipt Date: 20110913
  Transmission Date: 20111222
  Serious: Yes (Life-Threatening, Hospitalization, Other)
  Sender: FDA-Public Use
  Company Number: KZ-ABBOTT-11P-230-0847891-00

PATIENT
  Sex: Male
  Weight: 76 kg

DRUGS (8)
  1. ADRENALINI [Concomitant]
     Indication: ANAESTHESIA
     Route: 065
  2. BRUPEPAIN [Concomitant]
     Indication: PROPHYLAXIS
  3. FENTANILI [Concomitant]
     Indication: ANAESTHESIA
     Route: 065
  4. DOFAMINI [Concomitant]
     Indication: ANAESTHESIA
     Route: 065
  5. SEVOFLURANE [Suspect]
     Indication: GENERAL ANAESTHESIA
     Dosage: 8:40AM TO 1:40PM
     Route: 055
     Dates: start: 20110816, end: 20110816
  6. BRUPEPAIN [Concomitant]
     Indication: ANXIETY
     Route: 065
  7. PIPERCURONI [Concomitant]
     Indication: ANAESTHESIA
     Route: 065
  8. PERTINGARNTI [Concomitant]
     Indication: ANAESTHESIA
     Route: 065

REACTIONS (4)
  - VENTRICULAR FIBRILLATION [None]
  - CARDIAC FAILURE ACUTE [None]
  - ATRIAL FIBRILLATION [None]
  - MYOCARDIAL INFARCTION [None]
